FAERS Safety Report 5607837-1 (Version None)
Quarter: 2008Q1

REPORT INFORMATION
  Report Type: 
  Country: None (occurrence: None)
  Receive Date: 20080130
  Receipt Date: 20071101
  Transmission Date: 20080703
  Serious: No
  Sender: FDA-Public Use
  Company Number: US-BAYER-200712992BWH

PATIENT

DRUGS (2)
  1. NEXAVAR [Suspect]
     Indication: DRUG USE FOR UNKNOWN INDICATION
     Route: 048
  2. NEUROPATHY MEDICATION NOS [Concomitant]
     Indication: NEUROPATHY PERIPHERAL

REACTIONS (1)
  - DEAFNESS [None]
